FAERS Safety Report 9206480 (Version 3)
Quarter: 2015Q4

REPORT INFORMATION
  Report Type: Report from Study
  Country: KR (occurrence: KR)
  Receive Date: 20130403
  Receipt Date: 20151017
  Transmission Date: 20160305
  Serious: Yes (Hospitalization)
  Sender: FDA-Public Use
  Company Number: KR-AMGEN-KORCT2013022040

PATIENT
  Age: 39 Year
  Sex: Male

DRUGS (10)
  1. PRITOR                             /01102601/ [Concomitant]
     Dosage: 80 MG, UNK
     Route: 048
     Dates: start: 20101221
  2. MIRCERA [Concomitant]
     Active Substance: METHOXY POLYETHYLENE GLYCOL-EPOETIN BETA
     Dosage: 1 DF, UNK
     Route: 058
     Dates: start: 20120626, end: 20120807
  3. CINACALCET HCL - KHK [Suspect]
     Active Substance: CINACALCET HYDROCHLORIDE
     Indication: HYPERPARATHYROIDISM SECONDARY
     Dosage: 50 MG, QD
     Route: 048
     Dates: start: 20120626
  4. BONKY [Concomitant]
     Dosage: 0.5 MUG, UNK
     Route: 048
     Dates: start: 20111122
  5. NEPHVITA [Concomitant]
     Dosage: 1 DF, UNK
     Route: 048
     Dates: start: 20101221
  6. KALIMATE [Concomitant]
     Active Substance: CALCIUM POLYSTYRENE SULFONATE
     Dosage: 5 G, UNK
     Route: 048
     Dates: start: 20120918, end: 20121001
  7. RENAGEL [Concomitant]
     Active Substance: SEVELAMER HYDROCHLORIDE
     Dosage: 2400 MG, UNK
     Route: 048
     Dates: start: 20120110
  8. ADALAT [Concomitant]
     Active Substance: NIFEDIPINE
     Dosage: 30 MG, UNK
     Route: 048
     Dates: start: 20101221
  9. PAKINOL [Concomitant]
     Dosage: 0.25 MG, UNK
     Route: 048
     Dates: start: 20120614, end: 20120627
  10. GASMOTIN [Concomitant]
     Active Substance: MOSAPRIDE CITRATE
     Dosage: 10 MG, UNK
     Route: 048
     Dates: start: 20120614

REACTIONS (1)
  - Epistaxis [Recovered/Resolved]

NARRATIVE: CASE EVENT DATE: 20121201
